FAERS Safety Report 25672949 (Version 2)
Quarter: 2025Q3

REPORT INFORMATION
  Report Type: Spontaneous
  Country: US (occurrence: US)
  Receive Date: 20250812
  Receipt Date: 20250813
  Transmission Date: 20251021
  Serious: Yes (Hospitalization, Other)
  Sender: BIOGEN
  Company Number: US-BIOGEN-2020BI00828543

PATIENT
  Sex: Male
  Weight: 45.4 kg

DRUGS (2)
  1. SPINRAZA [Suspect]
     Active Substance: NUSINERSEN
     Indication: Spinal muscular atrophy
     Route: 050
     Dates: end: 20250130
  2. SPINRAZA [Suspect]
     Active Substance: NUSINERSEN
     Route: 050

REACTIONS (10)
  - Exostosis [Unknown]
  - Constipation [Unknown]
  - Drug ineffective [Not Recovered/Not Resolved]
  - Overweight [Unknown]
  - Post-traumatic stress disorder [Unknown]
  - Impaired gastric emptying [Unknown]
  - Respiratory tract procedural complication [Unknown]
  - Scoliosis [Unknown]
  - Spinal muscular atrophy [Not Recovered/Not Resolved]
  - Post lumbar puncture syndrome [Unknown]
